FAERS Safety Report 21212487 (Version 1)
Quarter: 2022Q3

REPORT INFORMATION
  Report Type: Spontaneous
  Country: US (occurrence: None)
  Receive Date: 20220812
  Receipt Date: 20220812
  Transmission Date: 20221027
  Serious: No
  Sender: FDA-Public Use
  Company Number: None

PATIENT
  Age: 54 Year
  Sex: Female
  Weight: 105.75 kg

DRUGS (4)
  1. HUMIRA [Suspect]
     Active Substance: ADALIMUMAB
     Indication: Rheumatoid arthritis
     Dosage: FREQUENCY : EVERY OTHER WEEK;?
     Route: 058
     Dates: start: 20220608, end: 20220622
  2. MELATONIN [Concomitant]
     Active Substance: MELATONIN
  3. MAGNESIUM [Concomitant]
     Active Substance: MAGNESIUM
  4. BLACK COHOSH [Concomitant]
     Active Substance: BLACK COHOSH

REACTIONS (7)
  - Myalgia [None]
  - Injection site rash [None]
  - Rash pruritic [None]
  - Rash erythematous [None]
  - Drug ineffective [None]
  - Rash [None]
  - Burning sensation [None]

NARRATIVE: CASE EVENT DATE: 20220617
